FAERS Safety Report 5626413-8 (Version None)
Quarter: 2008Q1

REPORT INFORMATION
  Report Type: 
  Country: None (occurrence: None)
  Receive Date: 20080214
  Receipt Date: 20080204
  Transmission Date: 20080703
  Serious: Yes (Hospitalization)
  Sender: FDA-Public Use
  Company Number: JP-ASTRAZENECA-2008AP00341

PATIENT
  Age: 85 Year
  Sex: Male
  Weight: 37.8 kg

DRUGS (6)
  1. MEROPEN [Suspect]
     Indication: PNEUMONIA
     Route: 042
     Dates: start: 20071123, end: 20071126
  2. CARBENIN DRIP INFUSION [Concomitant]
     Indication: PNEUMONIA
     Route: 042
     Dates: start: 20071023, end: 20071105
  3. CIPROFLOXACIN [Concomitant]
     Indication: PNEUMONIA
     Route: 042
     Dates: start: 20071106, end: 20071122
  4. DALACIN-S [Concomitant]
     Indication: PNEUMONIA
     Route: 042
     Dates: start: 20071107, end: 20071122
  5. MINOMYCIN [Concomitant]
     Indication: PNEUMONIA
     Route: 042
     Dates: start: 20071116, end: 20071122
  6. NORVASC [Concomitant]
     Indication: HYPERTENSION
     Route: 048
     Dates: start: 20071123

REACTIONS (1)
  - PANCYTOPENIA [None]
